FAERS Safety Report 6470980-1 (Version None)
Quarter: 2009Q4

REPORT INFORMATION
  Report Type: 
  Country: None (occurrence: None)
  Receive Date: 20091203
  Receipt Date: 20081112
  Transmission Date: 20100525
  Serious: Yes (Death, Other)
  Sender: FDA-Public Use
  Company Number: IT-ELI_LILLY_AND_COMPANY-IT200801005647

PATIENT
  Age: 37 Year
  Sex: Male
  Weight: 75 kg

DRUGS (2)
  1. XIGRIS [Suspect]
     Indication: STAPHYLOCOCCAL SEPSIS
     Dosage: 0.024 MG/M2, EVERY HOUR (5MG AND 20 MG VIAL)
     Route: 042
     Dates: start: 20040930, end: 20041002
  2. XIGRIS [Suspect]
     Dosage: 0.024 MG/M2, EVERY HOUR (96 HRS 5 MG VIAL AND 20 MG VIAL)
     Route: 042
     Dates: start: 20081002, end: 20081003

REACTIONS (6)
  - CARDIAC TAMPONADE [None]
  - DEATH [None]
  - HAEMOGLOBIN DECREASED [None]
  - HAEMORRHAGE [None]
  - PERICARDITIS [None]
  - PLATELET COUNT DECREASED [None]
